FAERS Safety Report 9004736 (Version 1)
Quarter: 2013Q1

REPORT INFORMATION
  Report Type: Spontaneous
  Country: FR (occurrence: FR)
  Receive Date: 20130109
  Receipt Date: 20130109
  Transmission Date: 20140127
  Serious: Yes (Hospitalization)
  Sender: FDA-Public Use
  Company Number: FR-009507513-1301FRA001452

PATIENT
  Age: 85 Year
  Sex: Female

DRUGS (9)
  1. TIENAM 500MG/500MG, POUDRE POUR PERFUSION [Suspect]
     Indication: FEBRILE NEUTROPENIA
     Dosage: 500 MG, UNK
     Route: 042
     Dates: start: 20110821, end: 20110827
  2. TAZOCILLINE [Suspect]
     Indication: FEBRILE NEUTROPENIA
     Dosage: 4 G, TID
     Route: 042
     Dates: start: 20110816, end: 20110821
  3. FLUCONAZOLE [Suspect]
     Indication: FUNGAL INFECTION
     Dosage: UNK
     Route: 048
     Dates: start: 20110817, end: 20110826
  4. NISISCO [Concomitant]
  5. TRAMADOL HYDROCHLORIDE [Concomitant]
  6. MIANSERIN HYDROCHLORIDE [Concomitant]
  7. AERIUS (DESLORATADINE) [Concomitant]
  8. UVEDOSE [Concomitant]
  9. OSSOPAN [Concomitant]

REACTIONS (1)
  - Toxic skin eruption [Recovered/Resolved]
